FAERS Safety Report 26190310 (Version 1)
Quarter: 2025Q4

REPORT INFORMATION
  Report Type: Spontaneous
  Country: US (occurrence: US)
  Receive Date: 20251223
  Receipt Date: 20251223
  Transmission Date: 20260117
  Serious: Yes (Life-Threatening, Hospitalization)
  Sender: MERCK SHARP & DOHME LLC
  Company Number: US-009507513-2363590

PATIENT
  Age: 68 Year
  Sex: Female

DRUGS (1)
  1. DAPTOMYCIN [Suspect]
     Active Substance: DAPTOMYCIN
     Indication: Staphylococcal infection

REACTIONS (3)
  - Eosinophilic pneumonia [Recovering/Resolving]
  - Acute respiratory failure [Recovering/Resolving]
  - Product use in unapproved indication [Unknown]
